FAERS Safety Report 17403331 (Version 2)
Quarter: 2021Q1

REPORT INFORMATION
  Report Type: Spontaneous
  Country: US (occurrence: US)
  Receive Date: 20200211
  Receipt Date: 20210128
  Transmission Date: 20210419
  Serious: No
  Sender: FDA-Public Use
  Company Number: US-PERRIGO-19US012645

PATIENT
  Age: 26 Year
  Sex: Male
  Weight: 79.37 kg

DRUGS (4)
  1. TRETINOIN. [Suspect]
     Active Substance: TRETINOIN
     Indication: PRODUCT USED FOR UNKNOWN INDICATION
     Dosage: SMALL AMOUNT, BID
     Route: 061
     Dates: start: 201909, end: 20191020
  2. TRETINOIN. [Suspect]
     Active Substance: TRETINOIN
     Dosage: UNKNOWN, UNKNOWN
     Route: 061
     Dates: start: 20200629
  3. TRETINOIN. [Suspect]
     Active Substance: TRETINOIN
     Dosage: SMALL AMOUNT, NIGHTLY
     Route: 061
     Dates: start: 20191021, end: 20191105
  4. TRETINOIN. [Suspect]
     Active Substance: TRETINOIN
     Indication: ACNE
     Dosage: 1/2 INCH, NIGHTLY, PRN
     Route: 061
     Dates: start: 2019, end: 201909

REACTIONS (4)
  - Inappropriate schedule of product administration [Recovered/Resolved]
  - Application site exfoliation [Unknown]
  - Application site discolouration [Not Recovered/Not Resolved]
  - Therapeutic product effect delayed [Unknown]

NARRATIVE: CASE EVENT DATE: 2019
